FAERS Safety Report 26095519 (Version 1)
Quarter: 2025Q4

REPORT INFORMATION
  Report Type: Spontaneous
  Country: EU (occurrence: EU)
  Receive Date: 20251127
  Receipt Date: 20251127
  Transmission Date: 20260117
  Serious: Yes (Hospitalization)
  Sender: ALKEM
  Company Number: EU-ALKEM LABORATORIES LIMITED-IT-ALKEM-2025-12699

PATIENT
  Age: 24 Year
  Sex: Male

DRUGS (10)
  1. LACOSAMIDE [Suspect]
     Active Substance: LACOSAMIDE
     Indication: Post-traumatic epilepsy
     Dosage: 300 MG/DAY
     Route: 065
  2. ESLICARBAZEPINE [Suspect]
     Active Substance: ESLICARBAZEPINE
     Indication: Post-traumatic epilepsy
     Dosage: 1600 MG/DAY
     Route: 065
  3. PHENOBARBITAL [Suspect]
     Active Substance: PHENOBARBITAL
     Indication: Post-traumatic epilepsy
     Dosage: 150 MG/DAY
     Route: 065
  4. DOMPERIDONE [Concomitant]
     Active Substance: DOMPERIDONE
     Indication: Product used for unknown indication
     Dosage: UNK
     Route: 065
  5. Ezetimibe/Simvastatina [Concomitant]
     Indication: Product used for unknown indication
     Dosage: UNK
     Route: 065
  6. Medoximil/Amlodipine [Concomitant]
     Indication: Product used for unknown indication
     Dosage: UNK (20/5 MILLIGRAM PER DAY)
     Route: 065
  7. METFORMIN [Concomitant]
     Active Substance: METFORMIN HYDROCHLORIDE
     Indication: Product used for unknown indication
     Dosage: UNK
     Route: 065
  8. OLMESARTAN [Concomitant]
     Active Substance: OLMESARTAN
     Indication: Product used for unknown indication
     Dosage: UNK
     Route: 065
  9. OMEPRAZOLE [Concomitant]
     Active Substance: OMEPRAZOLE
     Indication: Product used for unknown indication
     Dosage: UNK
     Route: 065
  10. Salicilate [Concomitant]
     Indication: Product used for unknown indication
     Dosage: 100 MG/DAY
     Route: 065

REACTIONS (1)
  - Hyponatraemia [Unknown]
